FAERS Safety Report 9809332 (Version 1)
Quarter: 2014Q1

REPORT INFORMATION
  Report Type: Spontaneous
  Country: US (occurrence: US)
  Receive Date: 20140110
  Receipt Date: 20140110
  Transmission Date: 20141002
  Serious: Yes (Death)
  Sender: FDA-Public Use
  Company Number: US-PFIZER INC-2014007235

PATIENT
  Age: 50 Year
  Sex: Female

DRUGS (2)
  1. AMLODIPINE BESILATE [Suspect]
     Dosage: UNK
     Route: 048
  2. DILTIAZEM [Suspect]
     Dosage: UNK
     Route: 048

REACTIONS (7)
  - Overdose [Fatal]
  - Completed suicide [Fatal]
  - Hypotension [Fatal]
  - Bradycardia [Fatal]
  - Hyperkalaemia [Fatal]
  - Loss of consciousness [Fatal]
  - Respiratory depression [Fatal]
